FAERS Safety Report 10228491 (Version 1)
Quarter: 2014Q2

REPORT INFORMATION
  Report Type: Report from Study
  Country: FR (occurrence: FR)
  Receive Date: 20140610
  Receipt Date: 20140610
  Transmission Date: 20141212
  Serious: Yes (Hospitalization, Other)
  Sender: FDA-Public Use
  Company Number: PHHY2014FR070156

PATIENT
  Age: 46 Year
  Sex: Female
  Weight: 59 kg

DRUGS (11)
  1. AMN107 [Suspect]
     Indication: CHRONIC MYELOID LEUKAEMIA
     Dosage: 600 MG, UNK
     Route: 048
     Dates: start: 20140125, end: 20140213
  2. LEVOTHYROX [Concomitant]
     Indication: HYPOTHYROIDISM
     Dosage: 25 UG, UNK
  3. CORTANCYL [Concomitant]
     Indication: SCLERODERMA
     Dosage: 15 MG, UNK
  4. IMETH [Concomitant]
     Dosage: 20 MG, MORNINGS
  5. SPECIAFOLDINE [Concomitant]
     Dosage: 15 MG, UNK
  6. DOLIPRANE [Concomitant]
     Indication: PAIN
     Dosage: 1 G, UNK
  7. MONOTILDIEM [Concomitant]
     Dosage: 200 MG, UNK
  8. OMEPRAZOLE [Concomitant]
     Dosage: 40 MG, QD
  9. DIFFU K [Concomitant]
     Dosage: 2 DF, UNK
  10. OROCAL D3 [Concomitant]
     Dosage: 2 DF, UNK
  11. COLTRAMYL [Concomitant]
     Dosage: 2 DF, UNK

REACTIONS (10)
  - Arthralgia [Recovered/Resolved]
  - Skin discolouration [Unknown]
  - Lymphadenopathy [Unknown]
  - Anaemia [Unknown]
  - Hypothermia [Unknown]
  - Tremor [Unknown]
  - Dyspnoea [Unknown]
  - Oedema peripheral [Unknown]
  - Dry skin [Unknown]
  - Dry mouth [Unknown]
